FAERS Safety Report 8330907-4 (Version None)
Quarter: 2012Q2

REPORT INFORMATION
  Report Type: 
  Country: None (occurrence: None)
  Receive Date: 20120502
  Receipt Date: 20120425
  Transmission Date: 20120825
  Serious: Yes (Hospitalization)
  Sender: FDA-Public Use
  Company Number: FR-PFIZER INC-2012101883

PATIENT
  Age: 32 Year
  Sex: Female

DRUGS (7)
  1. CYCLOPHOSPHAMIDE [Concomitant]
     Dosage: TOTAL OF 6 BOLUS
     Route: 040
     Dates: start: 20100114, end: 20110822
  2. PREDNISONE TAB [Suspect]
     Indication: NEUROPSYCHIATRIC LUPUS
     Dosage: 60 MG, DAILY
     Route: 048
     Dates: start: 20100104, end: 20100108
  3. SOLU-MEDROL [Suspect]
     Dosage: 500 MG, BOLUS
     Route: 040
     Dates: start: 20100109
  4. SOLU-MEDROL [Suspect]
     Indication: NEUROPSYCHIATRIC LUPUS
     Dosage: 150 MG, BOLUS
     Route: 040
     Dates: start: 20100102
  5. PREDNISONE TAB [Suspect]
     Dosage: 60 MG, DAILY
     Route: 048
     Dates: start: 20100112, end: 20100123
  6. PLAQUENIL [Concomitant]
     Dosage: 400MG (2 DF OF 200MG), DAILY
  7. BACTRIM [Concomitant]
     Dosage: 400 MG, DAILY

REACTIONS (4)
  - NEUROPSYCHIATRIC LUPUS [None]
  - ABNORMAL BEHAVIOUR [None]
  - DELIRIUM [None]
  - MANIA [None]
